FAERS Safety Report 19156137 (Version 2)
Quarter: 2021Q3

REPORT INFORMATION
  Report Type: Spontaneous
  Country: JP (occurrence: JP)
  Receive Date: 20210420
  Receipt Date: 20210701
  Transmission Date: 20211014
  Serious: Yes (Other)
  Sender: FDA-Public Use
  Company Number: JP-AMGEN-JPNSP2021059019

PATIENT
  Age: 58 Year
  Sex: Male

DRUGS (8)
  1. VECTIBIX [Suspect]
     Active Substance: PANITUMUMAB
     Dosage: UNK
     Route: 065
     Dates: start: 2021
  2. IRINOTECAN HYDROCHLORIDE. [Suspect]
     Active Substance: IRINOTECAN HYDROCHLORIDE
     Indication: COLON CANCER
     Dosage: UNK
     Route: 065
     Dates: start: 2021
  3. VECTIBIX [Suspect]
     Active Substance: PANITUMUMAB
     Indication: COLON CANCER
     Dosage: UNK
     Route: 065
  4. CALCIUM LEVOFOLINATE [Suspect]
     Active Substance: LEVOLEUCOVORIN CALCIUM
     Dosage: UNK
     Route: 065
     Dates: start: 2021
  5. FLUOROURACIL. [Suspect]
     Active Substance: FLUOROURACIL
     Indication: COLON CANCER
     Dosage: UNK
     Route: 065
  6. FLUOROURACIL. [Suspect]
     Active Substance: FLUOROURACIL
     Dosage: UNK
     Route: 065
     Dates: start: 2021
  7. CALCIUM LEVOFOLINATE [Suspect]
     Active Substance: LEVOLEUCOVORIN CALCIUM
     Indication: COLON CANCER
     Dosage: UNK
     Route: 065
  8. OXALIPLATIN. [Suspect]
     Active Substance: OXALIPLATIN
     Indication: COLON CANCER
     Dosage: UNK
     Route: 065

REACTIONS (3)
  - Surgery [Unknown]
  - Hypokalaemia [Unknown]
  - Hypernatraemia [Unknown]

NARRATIVE: CASE EVENT DATE: 202003
